FAERS Safety Report 6084897-8 (Version None)
Quarter: 2009Q1

REPORT INFORMATION
  Report Type: 
  Country: None (occurrence: None)
  Receive Date: 20090220
  Receipt Date: 20090211
  Transmission Date: 20090719
  Serious: Yes (Hospitalization, Other)
  Sender: FDA-Public Use
  Company Number: PHHY2008GB32523

PATIENT
  Sex: Male

DRUGS (2)
  1. CLOZARIL [Suspect]
     Indication: SCHIZOPHRENIA
     Dosage: 575 MG DAILY
     Route: 048
     Dates: start: 20060217
  2. RISPERIDONE [Concomitant]
     Indication: PSYCHOTIC DISORDER
     Dosage: 12 MG, UNK
     Route: 048

REACTIONS (11)
  - ABDOMINAL DISCOMFORT [None]
  - ABDOMINAL DISTENSION [None]
  - CONSTIPATION [None]
  - DYSPEPSIA [None]
  - GASTROINTESTINAL TUBE INSERTION [None]
  - HAEMOGLOBIN DECREASED [None]
  - ILEUS PARALYTIC [None]
  - LAPAROTOMY [None]
  - MONOCYTE COUNT INCREASED [None]
  - PLATELET COUNT INCREASED [None]
  - WHITE BLOOD CELL COUNT INCREASED [None]
